FAERS Safety Report 4395876-0 (Version None)
Quarter: 2004Q3

REPORT INFORMATION
  Report Type: 
  Country: None (occurrence: None)
  Receive Date: 20040713
  Receipt Date: 20040705
  Transmission Date: 20050211
  Serious: Yes (Life-Threatening)
  Sender: FDA-Public Use
  Company Number: PHNR2004AU01183

PATIENT
  Age: 51 Year
  Sex: Female

DRUGS (13)
  1. COMBIPATCH [Suspect]
     Route: 062
     Dates: start: 20030416
  2. AVANDIA [Suspect]
     Dosage: 4 MG, QD
     Route: 048
     Dates: start: 20030403
  3. GLIMEPIRIDE [Suspect]
     Indication: DIABETES MELLITUS
     Dosage: 4 MG, QD
     Route: 048
     Dates: start: 20030403
  4. CELECOXIB [Suspect]
     Dosage: 200 MG, QD
     Route: 048
     Dates: start: 20011015, end: 20030504
  5. ROFECOXIB [Suspect]
     Dosage: 25 MG, QD
     Dates: start: 20030504, end: 20030604
  6. OMEPRAZOLE [Concomitant]
  7. ALLOPURINOL [Concomitant]
  8. COVERSYL [Concomitant]
  9. MINAX [Concomitant]
  10. DIGOXIN [Concomitant]
  11. ALBUTEROL SULFATE [Concomitant]
  12. SERTRALINE HCL [Concomitant]
  13. FRUSEMIDE [Concomitant]

REACTIONS (5)
  - CARDIAC FAILURE [None]
  - CARDIOMEGALY [None]
  - DYSPNOEA EXERTIONAL [None]
  - FACE OEDEMA [None]
  - OEDEMA PERIPHERAL [None]
